FAERS Safety Report 24762800 (Version 1)
Quarter: 2024Q4

REPORT INFORMATION
  Report Type: Spontaneous
  Country: US (occurrence: US)
  Receive Date: 20241222
  Receipt Date: 20241222
  Transmission Date: 20250114
  Serious: No
  Sender: ELI LILLY AND COMPANY
  Company Number: US-ELI_LILLY_AND_COMPANY-US202412012089

PATIENT
  Age: 66 Year
  Sex: Female

DRUGS (1)
  1. DULOXETINE HYDROCHLORIDE [Suspect]
     Active Substance: DULOXETINE HYDROCHLORIDE
     Indication: Product used for unknown indication
     Dosage: UNK UNK, UNKNOWN
     Route: 065

REACTIONS (8)
  - Cyst [Unknown]
  - Skin lesion [Unknown]
  - Acne [Unknown]
  - Skin mass [Unknown]
  - Pustule [Unknown]
  - Papule [Unknown]
  - Fistula [Unknown]
  - Rash pruritic [Unknown]
